FAERS Safety Report 16353764 (Version 2)
Quarter: 2019Q2

REPORT INFORMATION
  Report Type: Spontaneous
  Country: DE (occurrence: DE)
  Receive Date: 20190524
  Receipt Date: 20190528
  Transmission Date: 20190711
  Serious: Yes (Other)
  Sender: FDA-Public Use
  Company Number: DE-JNJFOC-20190528405

PATIENT
  Age: 4 Month
  Sex: Female

DRUGS (1)
  1. RILPIVIRINE HYDROCHLORIDE [Suspect]
     Active Substance: RILPIVIRINE HYDROCHLORIDE
     Indication: PRODUCT USED FOR UNKNOWN INDICATION
     Route: 063

REACTIONS (2)
  - Maternal exposure during breast feeding [Unknown]
  - Neutropenia [Unknown]

NARRATIVE: CASE EVENT DATE: 20190507
